FAERS Safety Report 5133472-8 (Version None)
Quarter: 2006Q4

REPORT INFORMATION
  Report Type: 
  Country: None (occurrence: None)
  Receive Date: 20061024
  Receipt Date: 20051107
  Transmission Date: 20070319
  Serious: No
  Sender: FDA-Public Use
  Company Number: US-BRISTOL-MYERS SQUIBB COMPANY-13170170

PATIENT
  Age: 5 Month
  Sex: Male

DRUGS (1)
  1. TRIMOX [Suspect]

REACTIONS (1)
  - HAEMATOCHEZIA [None]
